FAERS Safety Report 10707086 (Version 1)
Quarter: 2015Q1

REPORT INFORMATION
  Report Type: Spontaneous
  Country: US (occurrence: None)
  Receive Date: 20150112
  Receipt Date: 20150112
  Transmission Date: 20150721
  Serious: Yes (Disabling)
  Sender: FDA-Public Use
  Company Number: None

PATIENT
  Age: 39 Year
  Sex: Female
  Weight: 56.7 kg

DRUGS (1)
  1. ZOLPIDEM [Suspect]
     Active Substance: ZOLPIDEM\ZOLPIDEM TARTRATE
     Indication: INSOMNIA
     Dosage: 1/2 PILL INITIALLY THEN 1
     Route: 048
     Dates: start: 20101010, end: 20130630

REACTIONS (7)
  - Neck pain [None]
  - Hypoaesthesia [None]
  - Back pain [None]
  - Impaired work ability [None]
  - Paraesthesia [None]
  - Arthritis [None]
  - Inflammation [None]

NARRATIVE: CASE EVENT DATE: 20130601
